FAERS Safety Report 13052661 (Version 1)
Quarter: 2016Q4

REPORT INFORMATION
  Report Type: Spontaneous
  Country: US (occurrence: US)
  Receive Date: 20161221
  Receipt Date: 20161221
  Transmission Date: 20170207
  Serious: No
  Sender: FDA-Public Use
  Company Number: US-ALLERGAN-1670248US

PATIENT
  Sex: Male

DRUGS (1)
  1. BYSTOLIC [Suspect]
     Active Substance: NEBIVOLOL HYDROCHLORIDE
     Indication: ARRHYTHMIA
     Dosage: 6.25 MG, QD
     Route: 048
     Dates: start: 201603

REACTIONS (1)
  - Dizziness [Recovered/Resolved]
